FAERS Safety Report 5528406-8 (Version None)
Quarter: 2007Q4

REPORT INFORMATION
  Report Type: 
  Country: None (occurrence: None)
  Receive Date: 20071123
  Receipt Date: 20071112
  Transmission Date: 20080405
  Serious: Yes (Hospitalization)
  Sender: FDA-Public Use
  Company Number: 2007-05057

PATIENT
  Age: 20 Year
  Sex: Male

DRUGS (4)
  1. FLUOROURACIL [Suspect]
     Indication: RECTAL CANCER
     Dosage: 200 MG, FOLFIRI PROTOCOL
     Dates: start: 20070101, end: 20070101
  2. BEVACIZUMAB(BEVACIZUMAB) [Suspect]
     Indication: RECTAL CANCER
     Dosage: 300 MG, FOLFIRI PROTOCOL
     Dates: start: 20070101, end: 20070101
  3. IRINOTECAN HCL [Suspect]
     Indication: RECTAL CANCER
     Dosage: 180 MG, FOLFIRI PROTOCOL
     Dates: start: 20070101, end: 20070101
  4. LEUCOVORIN CALCIUM [Concomitant]

REACTIONS (1)
  - INTESTINAL ISCHAEMIA [None]
